FAERS Safety Report 6843080-6 (Version None)
Quarter: 2010Q3

REPORT INFORMATION
  Report Type: 
  Country: None (occurrence: None)
  Receive Date: 20100715
  Receipt Date: 20100706
  Transmission Date: 20110219
  Serious: Yes (Hospitalization, Other)
  Sender: FDA-Public Use
  Company Number: US-BIOGENIDEC-2009BI041640

PATIENT
  Age: 48 Year
  Sex: Female

DRUGS (2)
  1. TYSABRI [Suspect]
     Indication: MULTIPLE SCLEROSIS
     Route: 042
     Dates: start: 20040101
  2. TYSABRI [Suspect]
     Route: 042
     Dates: start: 20061005

REACTIONS (3)
  - BREAST CANCER STAGE I [None]
  - FATIGUE [None]
  - WHITE BLOOD CELL COUNT DECREASED [None]
